FAERS Safety Report 22598976 (Version 2)
Quarter: 2024Q2

REPORT INFORMATION
  Report Type: Spontaneous
  Country: IL (occurrence: IL)
  Receive Date: 20230614
  Receipt Date: 20240619
  Transmission Date: 20240716
  Serious: Yes (Other)
  Sender: FDA-Public Use
  Company Number: IL-APIL-2315882US

PATIENT
  Age: 39 Year
  Sex: Male

DRUGS (3)
  1. UBRELVY [Suspect]
     Active Substance: UBROGEPANT
     Indication: Migraine
     Dosage: TREATMENT FOR 4 ATTACKS, 4-5 TABLETS
     Route: 048
     Dates: start: 20230219, end: 20230401
  2. LIPITOR [Concomitant]
     Active Substance: ATORVASTATIN CALCIUM
     Indication: Product used for unknown indication
  3. PROPRANOLOL [Concomitant]
     Active Substance: PROPRANOLOL HYDROCHLORIDE
     Indication: Migraine

REACTIONS (7)
  - Vision blurred [Recovered/Resolved]
  - Intracranial pressure increased [Unknown]
  - Visual field defect [Unknown]
  - Visual impairment [Unknown]
  - Lacunar infarction [Unknown]
  - Headache [Unknown]
  - Migraine [Unknown]

NARRATIVE: CASE EVENT DATE: 20230416
